FAERS Safety Report 7945165-X (Version None)
Quarter: 2011Q4

REPORT INFORMATION
  Report Type: 
  Country: None (occurrence: None)
  Receive Date: 20111129
  Receipt Date: 20111115
  Transmission Date: 20120403
  Serious: Yes (Hospitalization, Other)
  Sender: FDA-Public Use
  Company Number: GR-NOVOPROD-338195

PATIENT

DRUGS (3)
  1. LEVEMIR [Suspect]
     Route: 064
  2. NOVORAPID FLEXPEN [Suspect]
     Indication: TYPE 1 DIABETES MELLITUS
     Route: 064
  3. LEVEMIR [Suspect]
     Indication: TYPE 1 DIABETES MELLITUS
     Route: 064

REACTIONS (2)
  - NEONATAL RESPIRATORY DISTRESS SYNDROME [None]
  - EXPOSURE DURING BREAST FEEDING [None]
